FAERS Safety Report 10007105 (Version 1)
Quarter: 2014Q1

REPORT INFORMATION
  Report Type: Spontaneous
  Country: US (occurrence: None)
  Receive Date: 20140312
  Receipt Date: 20140312
  Transmission Date: 20141002
  Serious: Yes (Hospitalization)
  Sender: FDA-Public Use
  Company Number: None

PATIENT
  Age: 66 Year
  Sex: Male
  Weight: 68.04 kg

DRUGS (1)
  1. METOPROLOL TARTRATE [Suspect]
     Route: 048
     Dates: start: 20131209, end: 20140206

REACTIONS (6)
  - Dyspnoea [None]
  - Anxiety [None]
  - Insomnia [None]
  - Local swelling [None]
  - Peripheral coldness [None]
  - Syncope [None]
